FAERS Safety Report 6810327-1 (Version None)
Quarter: 2010Q2

REPORT INFORMATION
  Report Type: 
  Country: None (occurrence: None)
  Receive Date: 20100630
  Receipt Date: 20100618
  Transmission Date: 20101027
  Serious: Yes (Hospitalization)
  Sender: FDA-Public Use
  Company Number: PHHY2009DE29628

PATIENT
  Age: 78 Year
  Sex: Female
  Weight: 69 kg

DRUGS (9)
  1. RASILEZ [Suspect]
     Indication: HYPERTENSION
     Dosage: 150 MG, QD
     Route: 048
     Dates: start: 20090101
  2. RASILEZ [Suspect]
     Dosage: UNK
     Route: 048
     Dates: start: 20090602
  3. DIOVAN HCT [Suspect]
     Indication: HYPERTENSION
     Dosage: 80/12.5 MG
  4. ASPIRIN [Concomitant]
     Dosage: UNK
  5. CALCILAC KT [Concomitant]
     Dosage: UNK
  6. KATADOLON [Concomitant]
     Dosage: UNK
  7. LOCOL [Concomitant]
     Dosage: UNK
  8. VERTIGOHEEL [Concomitant]
     Dosage: UNK
  9. VOLTAREN [Concomitant]
     Dosage: UNK

REACTIONS (6)
  - DIARRHOEA [None]
  - GASTROINTESTINAL NEOPLASM [None]
  - HYPOTENSION [None]
  - LOSS OF CONSCIOUSNESS [None]
  - PULMONARY EMBOLISM [None]
  - SYNCOPE [None]
